FAERS Safety Report 13790259 (Version 2)
Quarter: 2017Q3

REPORT INFORMATION
  Report Type: Report from Study
  Country: US (occurrence: US)
  Receive Date: 20170725
  Receipt Date: 20170731
  Transmission Date: 20171127
  Serious: Yes (Hospitalization)
  Sender: FDA-Public Use
  Company Number: US-JNJFOC-20170328602

PATIENT
  Age: 86 Year
  Sex: Male

DRUGS (23)
  1. FLUTICASONE FUROATE W/VILANTEROL TRIFENATATE [Concomitant]
  2. RAMIPRIL. [Concomitant]
     Active Substance: RAMIPRIL
  3. SPIRONOLACTONE. [Concomitant]
     Active Substance: SPIRONOLACTONE
  4. FLOMAX [Concomitant]
     Active Substance: TAMSULOSIN HYDROCHLORIDE
  5. IMBRUVICA [Suspect]
     Active Substance: IBRUTINIB
     Indication: CHRONIC LYMPHOCYTIC LEUKAEMIA
     Route: 048
     Dates: start: 20170322, end: 2017
  6. FINASTERIDE. [Concomitant]
     Active Substance: FINASTERIDE
  7. IPRATROPIUM [Concomitant]
     Active Substance: IPRATROPIUM
  8. METFORMIN [Concomitant]
     Active Substance: METFORMIN HYDROCHLORIDE
  9. INSULIN ASPART [Concomitant]
     Active Substance: INSULIN ASPART
  10. TRESIBA [Concomitant]
     Active Substance: INSULIN DEGLUDEC
  11. NITROSTAT [Concomitant]
     Active Substance: NITROGLYCERIN
  12. AUGMENTIN [Concomitant]
     Active Substance: AMOXICILLIN\CLAVULANATE POTASSIUM
  13. COREG [Concomitant]
     Active Substance: CARVEDILOL
  14. PLAVIX [Concomitant]
     Active Substance: CLOPIDOGREL BISULFATE
  15. IMDUR [Concomitant]
     Active Substance: ISOSORBIDE MONONITRATE
  16. IMBRUVICA [Suspect]
     Active Substance: IBRUTINIB
     Indication: CHRONIC LYMPHOCYTIC LEUKAEMIA
     Route: 048
     Dates: start: 20170320
  17. TYLENOL [Concomitant]
     Active Substance: ACETAMINOPHEN
  18. SALBUTAMOL SULFATE [Concomitant]
     Active Substance: ALBUTEROL SULFATE
  19. ZOCOR [Concomitant]
     Active Substance: SIMVASTATIN
  20. SPIRIVA [Concomitant]
     Active Substance: TIOTROPIUM BROMIDE MONOHYDRATE
  21. ASPIRIN 81 [Concomitant]
     Active Substance: ASPIRIN
  22. IRON [Concomitant]
     Active Substance: IRON
  23. FERROUS FUMARATE [Concomitant]
     Active Substance: FERROUS FUMARATE

REACTIONS (11)
  - Abdominal pain upper [Unknown]
  - Anaemia [Unknown]
  - Off label use [Unknown]
  - Feeling abnormal [Recovering/Resolving]
  - Nausea [Not Recovered/Not Resolved]
  - Haemoglobin decreased [Recovered/Resolved]
  - Incorrect dose administered [Unknown]
  - Dysgeusia [Not Recovered/Not Resolved]
  - Fatigue [Recovering/Resolving]
  - Arrhythmia [Unknown]
  - Lethargy [Recovering/Resolving]

NARRATIVE: CASE EVENT DATE: 20170322
